FAERS Safety Report 20736103 (Version 1)
Quarter: 2022Q2

REPORT INFORMATION
  Report Type: Other
  Country: US (occurrence: None)
  Receive Date: 20220421
  Receipt Date: 20220421
  Transmission Date: 20220721
  Serious: No
  Sender: FDA-Public Use
  Company Number: US-ROCHE-3079240

PATIENT
  Sex: Female

DRUGS (1)
  1. OCREVUS [Suspect]
     Active Substance: OCRELIZUMAB
     Indication: Relapsing-remitting multiple sclerosis
     Dosage: (PRESCRIBED AS INFUSE 300 MG REPEAT DOSE 2 WEEKS LATER THEN 600 MG EVERY 6 MONTHS) ?DATE OF TREATMEN
     Route: 065

REACTIONS (1)
  - COVID-19 [Unknown]
